FAERS Safety Report 9826240 (Version 1)
Quarter: 2014Q1

REPORT INFORMATION
  Report Type: Spontaneous
  Country: US (occurrence: US)
  Receive Date: 20140117
  Receipt Date: 20140117
  Transmission Date: 20141002
  Serious: Yes (Other)
  Sender: FDA-Public Use
  Company Number: US-009507513-1401USA006097

PATIENT
  Age: 73 Year
  Sex: Male

DRUGS (3)
  1. ZOCOR [Suspect]
     Indication: BLOOD CHOLESTEROL INCREASED
     Dosage: 40 MG, QD
     Route: 048
     Dates: start: 2011
  2. SLO-NIACIN [Suspect]
     Indication: BLOOD CHOLESTEROL INCREASED
     Dosage: 500 MG, BID
     Route: 048
     Dates: start: 2011
  3. ASPIRIN [Concomitant]
     Dosage: UNK

REACTIONS (4)
  - Renal failure chronic [Not Recovered/Not Resolved]
  - Muscular weakness [Recovered/Resolved]
  - Flushing [Not Recovered/Not Resolved]
  - Pruritus [Not Recovered/Not Resolved]
